FAERS Safety Report 8519213-2 (Version None)
Quarter: 2012Q3

REPORT INFORMATION
  Report Type: 
  Country: None (occurrence: None)
  Receive Date: 20120718
  Receipt Date: 20120712
  Transmission Date: 20120928
  Serious: Yes (Hospitalization)
  Sender: FDA-Public Use
  Company Number: US-AMGEN-USANI2012043651

PATIENT
  Age: 54 Year
  Sex: Male
  Weight: 89.2 kg

DRUGS (3)
  1. CARBOPLATIN [Concomitant]
     Dosage: 3600 MG, UNK
     Dates: start: 20110413, end: 20110913
  2. TAXOL [Concomitant]
     Dosage: 1530 MG, UNK
     Dates: start: 20110413, end: 20110913
  3. PANITUMUMAB [Suspect]
     Indication: NON-SMALL CELL LUNG CANCER
     Dosage: 1500 MG, UNK
     Dates: start: 20110413, end: 20110913

REACTIONS (1)
  - LUNG INFECTION [None]
